FAERS Safety Report 4468133-1 (Version None)
Quarter: 2004Q4

REPORT INFORMATION
  Report Type: 
  Country: None (occurrence: None)
  Receive Date: 20041004
  Receipt Date: 20041004
  Transmission Date: 20050328
  Serious: Yes (Other)
  Sender: FDA-Public Use
  Company Number: None

PATIENT
  Sex: Male
  Weight: 88.905 kg

DRUGS (1)
  1. VIOXX [Suspect]
     Indication: ARTHRITIS
     Dosage: ONE TABLET ONCE DAILY

REACTIONS (3)
  - EXTRASYSTOLES [None]
  - HEART RATE INCREASED [None]
  - PALPITATIONS [None]
